FAERS Safety Report 24342999 (Version 2)
Quarter: 2024Q3

REPORT INFORMATION
  Report Type: Spontaneous
  Country: US (occurrence: US)
  Receive Date: 20240920
  Receipt Date: 20240926
  Transmission Date: 20241017
  Serious: Yes (Other)
  Sender: REGENERON
  Company Number: US-REGENERON PHARMACEUTICALS, INC.-2024-125801

PATIENT
  Age: 86 Year
  Sex: Male

DRUGS (6)
  1. EYLEA [Suspect]
     Active Substance: AFLIBERCEPT
     Indication: Neovascular age-related macular degeneration
     Dosage: UNK, FORMULATION: UNKNOWN
     Route: 031
     Dates: start: 20230313
  2. EYLEA [Suspect]
     Active Substance: AFLIBERCEPT
     Dosage: UNK, FORMULATION: UNKNOWN
     Route: 031
     Dates: start: 20230424
  3. EYLEA [Suspect]
     Active Substance: AFLIBERCEPT
     Dosage: UNK, FORMULATION: UNKNOWN
     Route: 031
  4. EYLEA [Suspect]
     Active Substance: AFLIBERCEPT
     Dosage: UNK, FORMULATION: UNKNOWN
     Route: 031
  5. EYLEA [Suspect]
     Active Substance: AFLIBERCEPT
     Dosage: UNK, FORMULATION: UNKNOWN
     Route: 031
     Dates: start: 20230814
  6. EYLEA [Suspect]
     Active Substance: AFLIBERCEPT
     Dosage: UNK, FORMULATION: UNKNOWN
     Route: 031
     Dates: start: 20231013

REACTIONS (3)
  - Subretinal fluid [Not Recovered/Not Resolved]
  - Condition aggravated [Not Recovered/Not Resolved]
  - Visual acuity reduced [Unknown]
